FAERS Safety Report 21495011 (Version 1)
Quarter: 2022Q4

REPORT INFORMATION
  Report Type: Spontaneous
  Country: US (occurrence: US)
  Receive Date: 20221022
  Receipt Date: 20221022
  Transmission Date: 20230113
  Serious: No
  Sender: FDA-Public Use
  Company Number: US-CELLTRION INC.-2021US019366

PATIENT

DRUGS (1)
  1. INFLECTRA [Suspect]
     Active Substance: INFLIXIMAB-DYYB
     Indication: Product used for unknown indication
     Dosage: DIRECTIONS: INJECTION 534 MG OF INFLECTRA FREQUENCY: WEEK 0,2,6 THEN Q 8 WKS

REACTIONS (2)
  - Unevaluable event [Unknown]
  - Product temperature excursion issue [Unknown]
